FAERS Safety Report 8475701-9 (Version None)
Quarter: 2012Q2

REPORT INFORMATION
  Report Type: 
  Country: None (occurrence: None)
  Receive Date: 20120628
  Receipt Date: 20120619
  Transmission Date: 20120825
  Serious: Yes (Other)
  Sender: FDA-Public Use
  Company Number: US-GLAXOSMITHKLINE-A0981700A

PATIENT
  Age: 62 Year
  Sex: Male

DRUGS (11)
  1. MELATONIN [Concomitant]
  2. SINGULAIR [Concomitant]
  3. ZINC SULFATE [Concomitant]
  4. SELENIUM [Concomitant]
  5. ADVAIR DISKUS 100/50 [Suspect]
     Indication: BRONCHIOLITIS
     Dosage: 1PUFF TWICE PER DAY
     Route: 055
     Dates: start: 20120302, end: 20120515
  6. MULTI-VITAMINS [Concomitant]
  7. VITAMIN B-12 [Concomitant]
  8. LORAZEPAM [Concomitant]
  9. FLONASE [Concomitant]
  10. GLUCOSAMINE CHONDROITIN [Concomitant]
  11. FOLIC ACID [Concomitant]

REACTIONS (10)
  - NERVOUSNESS [None]
  - FEELING ABNORMAL [None]
  - APHASIA [None]
  - PANIC REACTION [None]
  - NASAL CONGESTION [None]
  - DYSPHONIA [None]
  - SECRETION DISCHARGE [None]
  - ANXIETY [None]
  - FEAR OF DEATH [None]
  - THROAT TIGHTNESS [None]
